FAERS Safety Report 22294700 (Version 2)
Quarter: 2023Q2

REPORT INFORMATION
  Report Type: Spontaneous
  Country: US (occurrence: US)
  Receive Date: 20230508
  Receipt Date: 20230608
  Transmission Date: 20230722
  Serious: No
  Sender: FDA-Public Use
  Company Number: US-PFIZER INC-202101106493

PATIENT
  Age: 68 Year
  Sex: Female

DRUGS (2)
  1. PREMARIN [Suspect]
     Active Substance: ESTROGENS, CONJUGATED
     Dosage: 0.5 G, 2X/WEEK (0.5 G VAGINAL AT BEDTIME)
     Route: 067
     Dates: start: 20210823
  2. PREMARIN [Suspect]
     Active Substance: ESTROGENS, CONJUGATED
     Dosage: 0.5 G (0.5 G VAGINAL AT BEDTIME, USE @BEDTIME FOR 14 NIGHTS, THEN DECREASE TO TWICE WEEKLY)
     Route: 067

REACTIONS (2)
  - Drug hypersensitivity [Unknown]
  - Off label use [Unknown]
